FAERS Safety Report 6355776-3 (Version None)
Quarter: 2009Q3

REPORT INFORMATION
  Report Type: 
  Country: None (occurrence: None)
  Receive Date: 20090911
  Receipt Date: 20090911
  Transmission Date: 20100115
  Serious: Yes (Other)
  Sender: FDA-Public Use
  Company Number: None

PATIENT
  Sex: Female
  Weight: 87.9978 kg

DRUGS (2)
  1. SERTRALINE HCL [Suspect]
     Indication: ANXIETY
     Dosage: 25 MG QD
  2. EFFEXOR [Suspect]
     Indication: ANXIETY
     Dosage: 37.5 MG QD

REACTIONS (3)
  - DIZZINESS [None]
  - NAUSEA [None]
  - NERVOUSNESS [None]
